FAERS Safety Report 10348833 (Version 2)
Quarter: 2014Q3

REPORT INFORMATION
  Report Type: Spontaneous
  Country: SK (occurrence: SK)
  Receive Date: 20140729
  Receipt Date: 20140811
  Transmission Date: 20150326
  Serious: Yes (Disabling)
  Sender: FDA-Public Use
  Company Number: SK-US-EMD SERONO, INC.-7309197

PATIENT
  Age: 53 Year
  Sex: Female

DRUGS (7)
  1. CONCOR                             /00802602/ [Concomitant]
     Indication: ARTERIOSCLEROSIS
  2. CONCOR                             /00802602/ [Concomitant]
     Indication: ESSENTIAL HYPERTENSION
  3. TENAXUM                            /00939801/ [Concomitant]
     Indication: ARTERIOSCLEROSIS
  4. AMIRAP [Concomitant]
     Indication: ESSENTIAL HYPERTENSION
  5. REBIF [Suspect]
     Active Substance: INTERFERON BETA-1A
     Indication: MULTIPLE SCLEROSIS
     Dates: start: 201402
  6. AMIRAP [Concomitant]
     Indication: ARTERIOSCLEROSIS
  7. TENAXUM                            /00939801/ [Concomitant]
     Indication: ESSENTIAL HYPERTENSION

REACTIONS (1)
  - Subclavian steal syndrome [Unknown]

NARRATIVE: CASE EVENT DATE: 20140616
